FAERS Safety Report 4859185-5 (Version None)
Quarter: 2005Q4

REPORT INFORMATION
  Report Type: 
  Country: None (occurrence: None)
  Receive Date: 20051219
  Receipt Date: 20050926
  Transmission Date: 20060501
  Serious: No
  Sender: FDA-Public Use
  Company Number: US-GLAXOSMITHKLINE-A0575827A

PATIENT
  Age: 22 Year
  Sex: Male

DRUGS (2)
  1. EQUATE NTS 21MG [Suspect]
     Dates: start: 20050926
  2. HYDROXYCUT [Concomitant]

REACTIONS (3)
  - DIZZINESS [None]
  - NAUSEA [None]
  - VOMITING [None]
